FAERS Safety Report 16944204 (Version 2)
Quarter: 2019Q4

REPORT INFORMATION
  Report Type: Spontaneous
  Country: NL (occurrence: NL)
  Receive Date: 20191022
  Receipt Date: 20191223
  Transmission Date: 20200122
  Serious: Yes (Hospitalization)
  Sender: FDA-Public Use
  Company Number: NL-SUN PHARMACEUTICAL INDUSTRIES LTD-2019R1-223697

PATIENT
  Age: 76 Year
  Sex: Male
  Weight: 74 kg

DRUGS (7)
  1. PANTOPRAZOL 40MGPANTOPRAZOL TABLET MSR 40MG [Concomitant]
     Indication: PRODUCT USED FOR UNKNOWN INDICATION
     Dosage: 80 MILLIGRAM, DAILY 1X DAAGS 80 MG
     Route: 065
  2. METFORMINE HCL 850 MGMETFORMINE TABLET   850MG [Concomitant]
     Indication: PRODUCT USED FOR UNKNOWN INDICATION
     Dosage: 500 MILLIGRAM, DAILY 1X DAAGS 850 MG
     Route: 065
  3. CLOPIDOGREL 75MGCLOPIDOGREL TABLET   75MG [Concomitant]
     Indication: PRODUCT USED FOR UNKNOWN INDICATION
     Dosage: 75 MILLIGRAM, DAILY 1X DAAGS 75 MG ORAAL
     Route: 048
  4. METFORMINE HCL 850 MGMETFORMINE TABLET   850MG [Concomitant]
     Dosage: 850 MILLIGRAM, DAILY 1X DAAGS 850 MG
     Route: 065
  5. ALFUZOSIN [Suspect]
     Active Substance: ALFUZOSIN
     Indication: MICTURITION DISORDER
     Dosage: 10 MILLIGRAM, DAILY 1X PER DAG
     Route: 050
     Dates: start: 20190917, end: 20190918
  6. SIMVASTATINE 20MGSIMVASTATINE TABLET FO 20MG [Concomitant]
     Indication: PRODUCT USED FOR UNKNOWN INDICATION
     Dosage: 20 MILLIGRAM, DAILY OM 22 UUR 20 MG
  7. TESTOSTERON GEL 16,2 MG/GTESTOSTERON GEL 16,2MG/G [Concomitant]
     Indication: PRODUCT USED FOR UNKNOWN INDICATION
     Dosage: 40 MILLIGRAM, DAILY 1DD 40MG
     Route: 065

REACTIONS (2)
  - Delirium [Recovered/Resolved]
  - Syncope [Recovered/Resolved]

NARRATIVE: CASE EVENT DATE: 20190917
